FAERS Safety Report 7390192-7 (Version None)
Quarter: 2011Q2

REPORT INFORMATION
  Report Type: 
  Country: None (occurrence: None)
  Receive Date: 20110401
  Receipt Date: 20110323
  Transmission Date: 20111010
  Serious: Yes (Other)
  Sender: FDA-Public Use
  Company Number: US-ELI_LILLY_AND_COMPANY-US201103003133

PATIENT
  Sex: Male
  Weight: 95.238 kg

DRUGS (16)
  1. MULTI-VITAMIN [Concomitant]
     Indication: SUPPLEMENTATION THERAPY
     Dosage: UNK
     Route: 048
     Dates: start: 19910101
  2. PEMETREXED [Suspect]
     Indication: NON-SMALL CELL LUNG CANCER
     Dosage: 500 MG/M2, OTHER
     Route: 042
     Dates: start: 20110126, end: 20110216
  3. ZAROXOLYN [Concomitant]
     Indication: OEDEMA
     Dates: start: 20110302
  4. FENTANYL [Concomitant]
     Indication: PAIN
     Dosage: UNK
     Dates: start: 20110119
  5. COMPAZINE [Concomitant]
     Indication: ANXIETY
     Dosage: UNK
     Dates: start: 20110208
  6. MIRALAX [Concomitant]
     Indication: CONSTIPATION
     Dosage: UNK
     Route: 048
     Dates: start: 20110215
  7. DEXAMETHASONE [Concomitant]
     Indication: PREMEDICATION
     Dates: start: 20110125
  8. GLUCOSAMINE CHONDROITIN [Concomitant]
     Indication: PAIN
     Dosage: UNK
     Route: 048
     Dates: start: 20080101
  9. POTASSIUM [Concomitant]
     Dosage: UNK
     Dates: start: 20110309
  10. FOLIC ACID [Concomitant]
     Indication: PREMEDICATION
     Dates: start: 20110119
  11. ASCORBIC ACID [Concomitant]
     Indication: SUPPLEMENTATION THERAPY
     Dosage: UNK
     Route: 048
     Dates: start: 19910101
  12. ATIVAN [Concomitant]
     Indication: ANXIETY
     Dosage: UNK
     Route: 048
  13. MORPHINE SULFATE [Concomitant]
     Indication: PAIN
     Dosage: UNK
     Route: 048
     Dates: start: 20110110
  14. NORCO [Concomitant]
     Indication: PAIN
     Dosage: UNK
     Route: 048
     Dates: start: 20110107
  15. CARBOPLATIN [Suspect]
     Indication: NON-SMALL CELL LUNG CANCER
     Dosage: 6 D/F, OTHER
     Route: 042
     Dates: start: 20110126, end: 20110216
  16. VITAMIN B-12 [Concomitant]
     Indication: PREMEDICATION
     Dates: start: 20110129

REACTIONS (2)
  - OEDEMA PERIPHERAL [None]
  - DYSPNOEA [None]
